FAERS Safety Report 6935688-4 (Version None)
Quarter: 2010Q3

REPORT INFORMATION
  Report Type: 
  Country: None (occurrence: None)
  Receive Date: 20100823
  Receipt Date: 20100813
  Transmission Date: 20110219
  Serious: Yes (Other)
  Sender: FDA-Public Use
  Company Number: US-JNJFOC-20100805838

PATIENT
  Sex: Female
  Weight: 71.67 kg

DRUGS (3)
  1. TOPAMAX [Suspect]
     Indication: IMPULSE-CONTROL DISORDER
     Route: 048
  2. LITHIUM CARBONATE [Concomitant]
     Indication: SCHIZOPHRENIA
     Route: 048
  3. CLOZAPINE [Concomitant]
     Dosage: 100 MG TABLET IN THE AM, 250 MG (100MG+ 100 MG+ 50 MG) TABLET IN THE PM
     Route: 048

REACTIONS (2)
  - BLOOD CHLORIDE INCREASED [None]
  - CARBON DIOXIDE DECREASED [None]
